FAERS Safety Report 11651891 (Version 4)
Quarter: 2018Q1

REPORT INFORMATION
  Report Type: Report from Study
  Country: JP (occurrence: JP)
  Receive Date: 20151022
  Receipt Date: 20180227
  Transmission Date: 20180508
  Serious: No
  Sender: FDA-Public Use
  Company Number: JP-SA-2015SA165005

PATIENT
  Sex: Male
  Weight: 56 kg

DRUGS (3)
  1. LAMICTAL [Concomitant]
     Active Substance: LAMOTRIGINE
     Route: 048
  2. DEPAKENE [Concomitant]
     Active Substance: VALPROIC ACID
     Indication: EPILEPSY
     Route: 048
     Dates: start: 20140807
  3. CERDELGA [Suspect]
     Active Substance: ELIGLUSTAT
     Indication: GAUCHER^S DISEASE TYPE I
     Route: 048
     Dates: start: 20150917

REACTIONS (6)
  - Cervical radiculopathy [Unknown]
  - Pain in extremity [Recovered/Resolved]
  - Lip injury [Recovered/Resolved]
  - Epilepsy [Recovered/Resolved]
  - Bronchitis [Recovered/Resolved]
  - Lip infection [Recovered/Resolved]

NARRATIVE: CASE EVENT DATE: 20150930
